FAERS Safety Report 8878874 (Version 2)
Quarter: 2012Q4

REPORT INFORMATION
  Report Type: 
  Country: JP (occurrence: JP)
  Receive Date: 20121026
  Receipt Date: 20121108
  Transmission Date: 20130627
  Serious: Yes (Other)
  Sender: FDA-Public Use
  Company Number: JP-ROCHE-1148639

PATIENT
  Age: 78 Year
  Sex: Female

DRUGS (1)
  1. HERCEPTIN [Suspect]
     Indication: BREAST CANCER RECURRENT
     Dosage: The first of B methods
     Route: 041
     Dates: start: 20121009

REACTIONS (1)
  - Infusion related reaction [Recovering/Resolving]
